FAERS Safety Report 9127977 (Version 1)
Quarter: 2013Q1

REPORT INFORMATION
  Report Type: Spontaneous
  Country: US (occurrence: US)
  Receive Date: 20130228
  Receipt Date: 20130228
  Transmission Date: 20140127
  Serious: Yes (Other)
  Sender: FDA-Public Use
  Company Number: US-SANOFI-AVENTIS-2013SA019385

PATIENT
  Age: 60 Year
  Sex: Female

DRUGS (1)
  1. LANTUS [Suspect]
     Indication: TYPE 2 DIABETES MELLITUS
     Dosage: TAKING FROM SEVERAL YEARS DOSE:30 UNIT(S)
     Route: 051

REACTIONS (3)
  - Renal disorder [Unknown]
  - Visual acuity reduced [Unknown]
  - Eye disorder [Recovered/Resolved]
